FAERS Safety Report 16086441 (Version 1)
Quarter: 2019Q1

REPORT INFORMATION
  Report Type: Spontaneous
  Country: US (occurrence: US)
  Receive Date: 20190318
  Receipt Date: 20190318
  Transmission Date: 20190418
  Serious: No
  Sender: FDA-Public Use
  Company Number: US-009507513-1903USA006859

PATIENT
  Age: 21 Year
  Sex: Female
  Weight: 56.24 kg

DRUGS (2)
  1. NEXPLANON [Suspect]
     Active Substance: ETONOGESTREL
     Dosage: IMPLANT
     Route: 059
     Dates: start: 20160502
  2. PROAIR HFA [Concomitant]
     Active Substance: ALBUTEROL SULFATE

REACTIONS (3)
  - Complication of device removal [Not Recovered/Not Resolved]
  - No adverse event [Unknown]
  - Implant site scar [Not Recovered/Not Resolved]

NARRATIVE: CASE EVENT DATE: 20190308
